FAERS Safety Report 9581489 (Version 2)
Quarter: 2013Q4

REPORT INFORMATION
  Report Type: Report from Study
  Country: JP (occurrence: JP)
  Receive Date: 20131002
  Receipt Date: 20131002
  Transmission Date: 20140711
  Serious: Yes (Other)
  Sender: FDA-Public Use
  Company Number: PHHY2012JP087166

PATIENT
  Age: 25 Year
  Sex: Male
  Weight: 59 kg

DRUGS (30)
  1. LEPONEX / CLOZARIL [Suspect]
     Indication: SCHIZOPHRENIA, PARANOID TYPE
     Dosage: 12.5 MG, UNK
     Route: 048
     Dates: start: 20110928, end: 20110928
  2. LEPONEX / CLOZARIL [Suspect]
     Dosage: 25 MG, UNK
     Route: 048
     Dates: start: 20110929, end: 20111001
  3. LEPONEX / CLOZARIL [Suspect]
     Dosage: 50 MG, UNK
     Route: 048
     Dates: start: 20111002, end: 20111004
  4. LEPONEX / CLOZARIL [Suspect]
     Dosage: 75 MG, UNK
     Route: 048
     Dates: start: 20111005, end: 20111007
  5. LEPONEX / CLOZARIL [Suspect]
     Dosage: 100 MG, UNK
     Route: 048
     Dates: start: 20111008, end: 20111010
  6. LEPONEX / CLOZARIL [Suspect]
     Dosage: 125 MG, UNK
     Route: 048
     Dates: start: 20111011, end: 20111013
  7. LEPONEX / CLOZARIL [Suspect]
     Dosage: 150 MG, UNK
     Route: 048
     Dates: start: 20111014, end: 20111016
  8. LEPONEX / CLOZARIL [Suspect]
     Dosage: 175 MG, UNK
     Route: 048
     Dates: start: 20111017, end: 20111019
  9. LEPONEX / CLOZARIL [Suspect]
     Dosage: 200 MG, UNK
     Route: 048
     Dates: start: 20111020, end: 20111022
  10. LEPONEX / CLOZARIL [Suspect]
     Dosage: 225 MG, UNK
     Route: 048
     Dates: start: 20111023, end: 20111025
  11. LEPONEX / CLOZARIL [Suspect]
     Dosage: 250 MG, UNK
     Route: 048
     Dates: start: 20111026, end: 20111029
  12. LEPONEX / CLOZARIL [Suspect]
     Dosage: 275 MG, UNK
     Route: 048
     Dates: start: 20111030, end: 20111102
  13. LEPONEX / CLOZARIL [Suspect]
     Dosage: 250 MG, UNK
     Route: 048
     Dates: start: 20111103, end: 20111109
  14. LEPONEX / CLOZARIL [Suspect]
     Dosage: 275 MG, UNK
     Route: 048
     Dates: start: 20111110, end: 20111116
  15. LEPONEX / CLOZARIL [Suspect]
     Dosage: 300 MG, UNK
     Route: 048
     Dates: start: 20111117, end: 20111121
  16. LEPONEX / CLOZARIL [Suspect]
     Dosage: 325 MG, UNK
     Route: 048
     Dates: start: 20111122, end: 20111128
  17. LEPONEX / CLOZARIL [Suspect]
     Dosage: 350 MG, UNK
     Route: 048
     Dates: start: 20111129, end: 20111202
  18. LEPONEX / CLOZARIL [Suspect]
     Dosage: 375 MG, UNK
     Route: 048
     Dates: start: 20111203, end: 20111207
  19. LEPONEX / CLOZARIL [Suspect]
     Dosage: 400 MG, UNK
     Route: 048
     Dates: start: 20111208, end: 20111214
  20. LEPONEX / CLOZARIL [Suspect]
     Dosage: 425 MG, UNK
     Route: 048
     Dates: start: 20111215, end: 20111221
  21. LEPONEX / CLOZARIL [Suspect]
     Dosage: 450 MG, UNK
     Route: 048
     Dates: start: 20111222, end: 20111228
  22. LEPONEX / CLOZARIL [Suspect]
     Dosage: 475 MG, UNK
     Route: 048
     Dates: start: 20111229, end: 20120101
  23. LEPONEX / CLOZARIL [Suspect]
     Dosage: 500 MG, UNK
     Route: 048
     Dates: start: 20120102, end: 20120105
  24. LEPONEX / CLOZARIL [Suspect]
     Dosage: 525 MG, UNK
     Route: 048
     Dates: start: 20120106, end: 20120111
  25. LEPONEX / CLOZARIL [Suspect]
     Dosage: 575 MG, UNK
     Route: 048
     Dates: start: 20120112, end: 20120118
  26. LEPONEX / CLOZARIL [Suspect]
     Dosage: 600 MG, UNK
     Route: 048
     Dates: start: 20120119
  27. FLUNITRAZEPAM [Concomitant]
     Indication: SCHIZOPHRENIA, PARANOID TYPE
     Dosage: 2 MG, UNK
     Route: 048
  28. FLUNITRAZEPAM [Concomitant]
     Dosage: 1 MG, UNK
     Route: 048
  29. LEXOTAN [Concomitant]
     Indication: SCHIZOPHRENIA, PARANOID TYPE
     Dosage: 5 MG, UNK
     Route: 048
     Dates: start: 20111017, end: 20111023
  30. POLYENE PHOSPHATIDYLCHOLINE [Concomitant]
     Indication: PROPHYLAXIS
     Dosage: 1500 MG, UNK
     Route: 048
     Dates: end: 20120316

REACTIONS (7)
  - Hepatic function abnormal [Recovered/Resolved]
  - Alanine aminotransferase increased [Recovered/Resolved]
  - Aspartate aminotransferase increased [Recovered/Resolved]
  - Salivary hypersecretion [Not Recovered/Not Resolved]
  - Anxiety [Recovered/Resolved]
  - Eosinophil count increased [Recovered/Resolved]
  - Monocyte count increased [Unknown]
